FAERS Safety Report 14635816 (Version 3)
Quarter: 2019Q1

REPORT INFORMATION
  Report Type: Spontaneous
  Country: US (occurrence: US)
  Receive Date: 20180314
  Receipt Date: 20190117
  Transmission Date: 20190417
  Serious: Yes (Other)
  Sender: FDA-Public Use
  Company Number: US-JNJFOC-20180316005

PATIENT
  Sex: Female
  Weight: 49.9 kg

DRUGS (1)
  1. FENTANYL TRANSDERMAL SYSTEM [Suspect]
     Active Substance: FENTANYL
     Indication: BACK DISORDER
     Route: 062

REACTIONS (8)
  - Upper limb fracture [Not Recovered/Not Resolved]
  - Product packaging quantity issue [Unknown]
  - Osteoporosis [Not Recovered/Not Resolved]
  - Intervertebral disc protrusion [Not Recovered/Not Resolved]
  - Nerve compression [Not Recovered/Not Resolved]
  - Systemic lupus erythematosus [Not Recovered/Not Resolved]
  - Anxiety [Not Recovered/Not Resolved]
  - Panic disorder [Not Recovered/Not Resolved]
